FAERS Safety Report 17901145 (Version 2)
Quarter: 2020Q3

REPORT INFORMATION
  Report Type: Spontaneous
  Country: BE (occurrence: BE)
  Receive Date: 20200616
  Receipt Date: 20200728
  Transmission Date: 20201103
  Serious: Yes (Other)
  Sender: FDA-Public Use
  Company Number: BE-009507513-2006BEL004640

PATIENT
  Age: 64 Year
  Sex: Male
  Weight: 73 kg

DRUGS (2)
  1. ONCOTICE [Suspect]
     Active Substance: BACILLUS CALMETTE-GUERIN SUBSTRAIN TICE LIVE ANTIGEN
     Indication: TRANSITIONAL CELL CARCINOMA
  2. ONCOTICE [Suspect]
     Active Substance: BACILLUS CALMETTE-GUERIN SUBSTRAIN TICE LIVE ANTIGEN
     Indication: BLADDER CANCER
     Dosage: 6 CYCLES
     Route: 043
     Dates: start: 201704

REACTIONS (2)
  - Infective spondylitis [Recovered/Resolved with Sequelae]
  - Disseminated Bacillus Calmette-Guerin infection [Recovered/Resolved]

NARRATIVE: CASE EVENT DATE: 201808
